FAERS Safety Report 9097821 (Version 2)
Quarter: 2013Q2

REPORT INFORMATION
  Report Type: Report from Study
  Country: JP (occurrence: JP)
  Receive Date: 20130212
  Receipt Date: 20130402
  Transmission Date: 20140414
  Serious: Yes (Other)
  Sender: FDA-Public Use
  Company Number: PHHY2013JP013485

PATIENT
  Age: 77 Year
  Sex: Male
  Weight: 52 kg

DRUGS (2)
  1. AFINITOR [Suspect]
     Indication: METASTATIC RENAL CELL CARCINOMA
     Dosage: 10 MG, DAILY
     Route: 048
     Dates: start: 20111216, end: 20120118
  2. AMLODIN [Concomitant]
     Dosage: 5 MG, UNK
     Route: 048
     Dates: start: 20111213

REACTIONS (4)
  - C-reactive protein increased [Unknown]
  - Haemoglobin decreased [Unknown]
  - Diarrhoea [Recovered/Resolved]
  - Interstitial lung disease [Recovering/Resolving]
